FAERS Safety Report 13138685 (Version 3)
Quarter: 2017Q1

REPORT INFORMATION
  Report Type: Report from Study
  Country: US (occurrence: US)
  Receive Date: 20170123
  Receipt Date: 20170317
  Transmission Date: 20170428
  Serious: Yes (Hospitalization, Other)
  Sender: FDA-Public Use
  Company Number: US-GILEAD-2017-0254409

PATIENT
  Age: 49 Year
  Sex: Female
  Weight: 64.31 kg

DRUGS (14)
  1. SENSIPAR [Concomitant]
     Active Substance: CINACALCET HYDROCHLORIDE
  2. TADALAFIL [Concomitant]
     Active Substance: TADALAFIL
  3. TYLENOL [Concomitant]
     Active Substance: ACETAMINOPHEN
  4. AMBRISENTAN [Suspect]
     Active Substance: AMBRISENTAN
     Indication: CONNECTIVE TISSUE DISORDER
  5. ASPIRIN 81 [Concomitant]
     Active Substance: ASPIRIN
  6. PANTOPRAZOLE [Concomitant]
     Active Substance: PANTOPRAZOLE SODIUM
  7. LORAZEPAM. [Concomitant]
     Active Substance: LORAZEPAM
  8. AMBRISENTAN [Suspect]
     Active Substance: AMBRISENTAN
     Indication: SYSTEMIC LUPUS ERYTHEMATOSUS
  9. RENVELA [Concomitant]
     Active Substance: SEVELAMER CARBONATE
  10. ADCIRCA [Concomitant]
     Active Substance: TADALAFIL
  11. AMBRISENTAN [Suspect]
     Active Substance: AMBRISENTAN
     Indication: PULMONARY ARTERIAL HYPERTENSION
     Dosage: 5 MG, QD
     Route: 048
  12. PROAIR HFA [Concomitant]
     Active Substance: ALBUTEROL SULFATE
  13. COUMADIN [Concomitant]
     Active Substance: WARFARIN SODIUM
  14. NEPHRO-VITE                        /01801401/ [Concomitant]

REACTIONS (10)
  - Presyncope [Unknown]
  - Hypotension [Unknown]
  - Chest pain [Unknown]
  - Graft infection [Unknown]
  - Dyspnoea [Unknown]
  - Transplant evaluation [Not Recovered/Not Resolved]
  - Drug dose omission [Unknown]
  - Muscular weakness [Not Recovered/Not Resolved]
  - Oxygen consumption increased [Unknown]
  - Hypertension [Unknown]

NARRATIVE: CASE EVENT DATE: 20170306
